FAERS Safety Report 22392952 (Version 1)
Quarter: 2023Q2

REPORT INFORMATION
  Report Type: Spontaneous
  Country: US (occurrence: None)
  Receive Date: 20230531
  Receipt Date: 20230531
  Transmission Date: 20230722
  Serious: Yes (Hospitalization, Disabling)
  Sender: FDA-Public Use
  Company Number: None

PATIENT
  Age: 91 Year
  Sex: Female
  Weight: 46.35 kg

DRUGS (9)
  1. LEVOFLOXACIN [Suspect]
     Active Substance: LEVOFLOXACIN
     Indication: Urinary tract infection
     Dates: start: 20230526, end: 20230529
  2. ELIQUIS [Concomitant]
     Active Substance: APIXABAN
  3. VALSARTAN [Concomitant]
     Active Substance: VALSARTAN
  4. TORSEMIDE [Concomitant]
     Active Substance: TORSEMIDE
  5. SIMVASTATIN [Concomitant]
     Active Substance: SIMVASTATIN
  6. OMEPRAZOLE [Concomitant]
     Active Substance: OMEPRAZOLE
  7. MIRTAZAPINE [Concomitant]
     Active Substance: MIRTAZAPINE
  8. METOPROLOL [Concomitant]
  9. MAGNESIUM [Concomitant]
     Active Substance: MAGNESIUM

REACTIONS (5)
  - Asthenia [None]
  - Confusional state [None]
  - Hallucination [None]
  - Paraesthesia [None]
  - Gait inability [None]

NARRATIVE: CASE EVENT DATE: 20230529
